FAERS Safety Report 15334175 (Version 1)
Quarter: 2018Q3

REPORT INFORMATION
  Report Type: Spontaneous
  Country: US (occurrence: US)
  Receive Date: 20180827
  Receipt Date: 20180827
  Transmission Date: 20181010
  Serious: Yes (Other)
  Sender: FDA-Public Use
  Company Number: None

PATIENT
  Age: 74 Year
  Sex: Male
  Weight: 72 kg

DRUGS (22)
  1. NADOLOL. [Concomitant]
     Active Substance: NADOLOL
  2. CREON [Concomitant]
     Active Substance: PANCRELIPASE AMYLASE\PANCRELIPASE LIPASE\PANCRELIPASE PROTEASE
  3. LOMOTIL [Concomitant]
     Active Substance: ATROPINE SULFATE\DIPHENOXYLATE HYDROCHLORIDE
  4. MS CONTIN [Concomitant]
     Active Substance: MORPHINE SULFATE
  5. METOCLOPRAMIDE. [Concomitant]
     Active Substance: METOCLOPRAMIDE
  6. ABRAXANE [Concomitant]
     Active Substance: PACLITAXEL
  7. DIFLUCAN [Concomitant]
     Active Substance: FLUCONAZOLE
  8. ENOXAPARIN [Concomitant]
     Active Substance: ENOXAPARIN
  9. HYDROMORPHONE [Concomitant]
     Active Substance: HYDROMORPHONE
  10. PROCRIT [Concomitant]
     Active Substance: ERYTHROPOIETIN
  11. TARCEVA [Suspect]
     Active Substance: ERLOTINIB HYDROCHLORIDE
     Indication: PANCREATIC CARCINOMA
     Route: 048
     Dates: start: 20180801
  12. DEXAMETHASONE. [Concomitant]
     Active Substance: DEXAMETHASONE
  13. DURAGESIC [Concomitant]
     Active Substance: FENTANYL
  14. NORCO [Concomitant]
     Active Substance: ACETAMINOPHEN\HYDROCODONE BITARTRATE
  15. VITAMIN B12 [Concomitant]
     Active Substance: CYANOCOBALAMIN
  16. OLANZAPINE. [Concomitant]
     Active Substance: OLANZAPINE
  17. MEGESTROL [Concomitant]
     Active Substance: MEGESTROL
  18. EFFEXOR XR [Concomitant]
     Active Substance: VENLAFAXINE HYDROCHLORIDE
  19. GABAPENTIN. [Concomitant]
     Active Substance: GABAPENTIN
  20. GAS RELIEF ES [Concomitant]
  21. CAMPTOSAR [Concomitant]
     Active Substance: IRINOTECAN HYDROCHLORIDE
  22. MOVANTIK [Concomitant]
     Active Substance: NALOXEGOL OXALATE

REACTIONS (1)
  - Disease progression [None]

NARRATIVE: CASE EVENT DATE: 20180824
